FAERS Safety Report 8268627-7 (Version None)
Quarter: 2012Q2

REPORT INFORMATION
  Report Type: 
  Country: None (occurrence: None)
  Receive Date: 20120409
  Receipt Date: 20120329
  Transmission Date: 20120825
  Serious: Yes (Hospitalization)
  Sender: FDA-Public Use
  Company Number: JP-ASTRAZENECA-2012SE11019

PATIENT
  Age: 66 Year
  Sex: Male
  Weight: 79 kg

DRUGS (16)
  1. ALLOID G [Concomitant]
     Indication: GASTRIC ULCER
     Route: 048
     Dates: start: 20120208
  2. ALLEGRA [Concomitant]
     Dosage: DOSE UNKNOWN
     Route: 065
     Dates: start: 20120212
  3. HOKUNALIN:TAPE [Concomitant]
     Indication: CHRONIC OBSTRUCTIVE PULMONARY DISEASE
     Route: 062
     Dates: start: 20120203
  4. GLUFAST [Concomitant]
     Indication: DIABETES MELLITUS
     Dosage: DOSE UNKNOWN
     Route: 065
     Dates: end: 20120215
  5. TAMSULOSIN HCL [Concomitant]
     Indication: BENIGN PROSTATIC HYPERPLASIA
     Route: 048
     Dates: start: 20120203
  6. ADVAIR DISKUS 100/50 [Concomitant]
     Indication: CHRONIC OBSTRUCTIVE PULMONARY DISEASE
     Route: 055
     Dates: start: 20120203
  7. RABEPRAZOLE SODIUM [Suspect]
     Indication: GASTRIC ULCER
     Route: 048
     Dates: start: 20120210, end: 20120214
  8. ROCEPHIN [Suspect]
     Indication: INFECTIOUS PERITONITIS
     Route: 041
     Dates: start: 20120206, end: 20120213
  9. SUCRALFATE HYDRATE [Concomitant]
     Indication: GASTRIC ULCER
     Route: 048
     Dates: start: 20120208, end: 20120214
  10. PREDNISOLONE [Concomitant]
     Dosage: DOSE UNKNOWN
     Route: 065
     Dates: start: 20120213
  11. OMEPRAZOLE [Suspect]
     Indication: GASTRIC ULCER
     Route: 041
     Dates: start: 20120206, end: 20120211
  12. ISOSORBIDE DINITRATE [Concomitant]
     Indication: HYPERTENSION
     Route: 062
     Dates: start: 20120203
  13. REZALTAS [Concomitant]
     Indication: HYPERTENSION
     Route: 048
     Dates: start: 20120203
  14. VOGLIBOSE [Concomitant]
     Indication: DIABETES MELLITUS
     Dosage: DOSE UNKNOWN
     Route: 065
     Dates: end: 20120215
  15. SUCRALFATE [Concomitant]
     Indication: GASTRIC ULCER
     Route: 048
     Dates: start: 20120208, end: 20120214
  16. ACTOS [Concomitant]
     Indication: DIABETES MELLITUS
     Dosage: DOSE UNKNOWN
     Route: 065
     Dates: end: 20120215

REACTIONS (2)
  - DRUG ERUPTION [None]
  - LIVER DISORDER [None]
